FAERS Safety Report 16995200 (Version 1)
Quarter: 2019Q4

REPORT INFORMATION
  Report Type: Spontaneous
  Country: JP (occurrence: JP)
  Receive Date: 20191105
  Receipt Date: 20191105
  Transmission Date: 20200122
  Serious: Yes (Other)
  Sender: FDA-Public Use
  Company Number: NVSJ2019JP001871

PATIENT
  Sex: Female

DRUGS (3)
  1. RIFAMPICIN [Suspect]
     Active Substance: RIFAMPIN
     Indication: PULMONARY TUBERCULOSIS
     Dosage: 450 MG
     Route: 065
  2. ETHAMBUTOL [Suspect]
     Active Substance: ETHAMBUTOL HYDROCHLORIDE
     Indication: PULMONARY TUBERCULOSIS
     Dosage: 750 MG
     Route: 065
  3. ISONIAZID. [Concomitant]
     Active Substance: ISONIAZID
     Indication: PULMONARY TUBERCULOSIS
     Dosage: 250 MG
     Route: 065

REACTIONS (6)
  - Polymyalgia rheumatica [Recovering/Resolving]
  - Musculoskeletal stiffness [Recovering/Resolving]
  - Concomitant disease progression [Recovering/Resolving]
  - Arthralgia [Recovering/Resolving]
  - Inhibitory drug interaction [Unknown]
  - C-reactive protein increased [Recovering/Resolving]
